FAERS Safety Report 4514461-0 (Version None)
Quarter: 2004Q4

REPORT INFORMATION
  Report Type: 
  Country: None (occurrence: None)
  Receive Date: 20040928
  Receipt Date: 20040716
  Transmission Date: 20050328
  Serious: No
  Sender: FDA-Public Use
  Company Number: 04P-163-0267392-00

PATIENT
  Age: 81 Year
  Sex: Male
  Weight: 65.7716 kg

DRUGS (9)
  1. HUMIRA [Suspect]
     Indication: OSTEOARTHRITIS
     Dosage: 40 MG, 1 IN 2 WK, SUBCUTANEOUS
     Route: 058
     Dates: start: 20040526
  2. HUMIRA [Suspect]
     Indication: RHEUMATOID ARTHRITIS
     Dosage: 40 MG, 1 IN 2 WK, SUBCUTANEOUS
     Route: 058
     Dates: start: 20040526
  3. METHOTREXATE [Concomitant]
  4. SOTALOL HCL [Concomitant]
  5. LEVOTHYROXINE SODIUM [Concomitant]
  6. ACETYLSALICYLIC ACID [Concomitant]
  7. FOLIC ACID [Concomitant]
  8. SCOPOLAMINE AMINOXIDE HYDROBROMIDE [Concomitant]
  9. GLUCOSAMINE [Concomitant]

REACTIONS (5)
  - INJECTION SITE ERYTHEMA [None]
  - INJECTION SITE SWELLING [None]
  - INJECTION SITE WARMTH [None]
  - NODULE [None]
  - PRURITUS [None]
